FAERS Safety Report 10037248 (Version 1)
Quarter: 2014Q1

REPORT INFORMATION
  Report Type: Spontaneous
  Country: US (occurrence: US)
  Receive Date: 20140326
  Receipt Date: 20140326
  Transmission Date: 20141002
  Serious: Yes (Hospitalization)
  Sender: FDA-Public Use
  Company Number: US-AMGEN-USASP2014020369

PATIENT
  Sex: Male

DRUGS (2)
  1. PROLIA [Suspect]
     Indication: OSTEOPOROSIS
     Dosage: UNK UNK, Q6MO
     Route: 065
  2. FORTEO [Concomitant]

REACTIONS (8)
  - Hospitalisation [Unknown]
  - Pancreatitis [Unknown]
  - Hypersensitivity [Not Recovered/Not Resolved]
  - Osteoporosis [Unknown]
  - Oral mucosal erythema [Not Recovered/Not Resolved]
  - Adverse event [Unknown]
  - Pruritus [Not Recovered/Not Resolved]
  - Erythema [Not Recovered/Not Resolved]
